FAERS Safety Report 6756883-3 (Version None)
Quarter: 2010Q2

REPORT INFORMATION
  Report Type: 
  Country: None (occurrence: None)
  Receive Date: 20100604
  Receipt Date: 20100507
  Transmission Date: 20101027
  Serious: Yes (Other)
  Sender: FDA-Public Use
  Company Number: US-PFIZER INC-2010067733

PATIENT
  Sex: Female

DRUGS (8)
  1. LYRICA [Suspect]
     Dosage: 75 MG, UNK
     Route: 048
  2. LISINOPRIL [Interacting]
     Indication: HYPERTENSION
     Dosage: UNK
  3. GLIPIZIDE [Interacting]
     Indication: DIABETES MELLITUS
     Dosage: UNK
  4. NEURONTIN [Interacting]
     Dosage: UNK
  5. AMLODIPINE BESYLATE [Interacting]
     Indication: HYPERTENSION
     Dosage: 7-8 MG ONE TO THREE TIMES A DAY
  6. METFORMIN HCL [Interacting]
     Indication: DIABETES MELLITUS
     Dosage: UNK
  7. METOPROLOL [Interacting]
     Indication: HYPERTENSION
     Dosage: 50 MG, UNK
  8. LEVOTHYROXINE SODIUM [Interacting]
     Indication: THYROID DISORDER
     Dosage: 0.005 MG, 1X/DAY

REACTIONS (14)
  - ASTHENIA [None]
  - CARPAL TUNNEL SYNDROME [None]
  - CERVICOBRACHIAL SYNDROME [None]
  - COMPLEX REGIONAL PAIN SYNDROME [None]
  - DRUG INTERACTION [None]
  - EAR INFECTION [None]
  - FALL [None]
  - MALAISE [None]
  - MASTICATION DISORDER [None]
  - OEDEMA [None]
  - PAIN IN EXTREMITY [None]
  - SCIATICA [None]
  - TINNITUS [None]
  - WRIST FRACTURE [None]
